FAERS Safety Report 5748059-3 (Version None)
Quarter: 2008Q2

REPORT INFORMATION
  Report Type: 
  Country: None (occurrence: None)
  Receive Date: 20080523
  Receipt Date: 20080513
  Transmission Date: 20081010
  Serious: Yes (Other)
  Sender: FDA-Public Use
  Company Number: CH-ELI_LILLY_AND_COMPANY-CH200805002612

PATIENT
  Age: 55 Year
  Sex: Female

DRUGS (4)
  1. CYMBALTA [Suspect]
     Indication: DEPRESSION
     Dosage: 60 MG, DAILY (1/D)
     Route: 048
     Dates: start: 20080328, end: 20080101
  2. CYMBALTA [Suspect]
     Dosage: 30 MG, DAILY (1/D)
     Route: 048
     Dates: start: 20080418
  3. LORAZEPAM [Concomitant]
     Dosage: UNK, UNKNOWN
     Route: 048
  4. ZOLPIDEM TARTRATE [Concomitant]
     Dosage: UNK, UNKNOWN
     Route: 048

REACTIONS (3)
  - INSOMNIA [None]
  - RESTLESS LEGS SYNDROME [None]
  - RESTLESSNESS [None]
